FAERS Safety Report 10049178 (Version 2)
Quarter: 2014Q2

REPORT INFORMATION
  Report Type: Spontaneous
  Country: VE (occurrence: VE)
  Receive Date: 20140401
  Receipt Date: 20140407
  Transmission Date: 20141212
  Serious: Yes (Other)
  Sender: FDA-Public Use
  Company Number: VE-009507513-1403VEN013867

PATIENT
  Age: 37 Year
  Sex: Female

DRUGS (1)
  1. NUVARING [Suspect]
     Indication: CONTRACEPTION
     Dosage: STRENGTH: 11.7 MG  ETONOGESTREL AND 2.7 MG ETHINYL ESTRADIOL, MONTHLY, 0.120 MG+0.015 MG/DAY
     Route: 067
     Dates: start: 201303

REACTIONS (5)
  - Abortion [Unknown]
  - Therapeutic procedure [Unknown]
  - Unintended pregnancy [Recovered/Resolved]
  - Therapeutic procedure [Unknown]
  - Adverse event [Unknown]
